FAERS Safety Report 9598892 (Version 1)
Quarter: 2013Q4

REPORT INFORMATION
  Report Type: Spontaneous
  Country: US (occurrence: US)
  Receive Date: 20131004
  Receipt Date: 20131004
  Transmission Date: 20140711
  Serious: No
  Sender: FDA-Public Use
  Company Number: US-AMGEN-USASP2013026578

PATIENT
  Age: 44 Year
  Sex: Female
  Weight: 97.51 kg

DRUGS (8)
  1. ENBREL [Suspect]
     Indication: PRODUCT USED FOR UNKNOWN INDICATION
     Dosage: 50 MG, QWK
     Route: 058
  2. TRIAMTERENE/HCTZ [Concomitant]
     Dosage: 25-37.5
  3. MOBIC [Concomitant]
     Dosage: 15 MG, UNK
  4. PRAVASTATIN [Concomitant]
     Dosage: 10 MG, UNK
  5. LORTAB                             /00917501/ [Concomitant]
     Dosage: 5 UNK, UNK
  6. ZOLOFT [Concomitant]
     Dosage: 25 MG, UNK
  7. ZEGERID                            /00661201/ [Concomitant]
     Dosage: 20-1100
  8. VIVELLE                            /00045401/ [Concomitant]
     Dosage: 0.05 MG, UNK

REACTIONS (4)
  - Visual impairment [Unknown]
  - Feeling abnormal [Unknown]
  - Oral infection [Unknown]
  - Cellulitis [Unknown]
